FAERS Safety Report 5052913-8 (Version None)
Quarter: 2006Q3

REPORT INFORMATION
  Report Type: 
  Country: None (occurrence: None)
  Receive Date: 20060712
  Receipt Date: 20060705
  Transmission Date: 20061208
  Serious: Yes (Other)
  Sender: FDA-Public Use
  Company Number: 0104-2828

PATIENT
  Sex: Male

DRUGS (1)
  1. ADVICOR [Suspect]

REACTIONS (1)
  - UNEVALUABLE EVENT [None]
